FAERS Safety Report 11695398 (Version 1)
Quarter: 2015Q4

REPORT INFORMATION
  Report Type: Spontaneous
  Country: US (occurrence: US)
  Receive Date: 20151104
  Receipt Date: 20151104
  Transmission Date: 20160304
  Serious: Yes (Hospitalization)
  Sender: FDA-Public Use
  Company Number: PHHY2015US143301

PATIENT
  Age: 65 Year
  Sex: Female

DRUGS (4)
  1. SIMVASTATIN. [Interacting]
     Active Substance: SIMVASTATIN
     Dosage: 40 MG, UNK
     Route: 065
  2. VARICELLA VACCINE, LIVE [Suspect]
     Active Substance: VARICELLA-ZOSTER VIRUS STRAIN OKA/MERCK LIVE ANTIGEN
     Indication: IMMUNISATION
     Route: 065
  3. SIMVASTATIN. [Interacting]
     Active Substance: SIMVASTATIN
     Indication: CORONARY ARTERY DISEASE
     Dosage: 20 MG, UNK
     Route: 065
  4. INFLUENZA VIRUS VACC SEASONAL INN [Interacting]
     Active Substance: INFLUENZA VIRUS VACCINE
     Indication: IMMUNISATION
     Dosage: 1 DF
     Route: 065

REACTIONS (12)
  - Muscular weakness [Unknown]
  - Hypoaesthesia [Unknown]
  - Tenderness [Unknown]
  - Rhabdomyolysis [Unknown]
  - Myopathy [Unknown]
  - Sensory loss [Unknown]
  - Decreased vibratory sense [Unknown]
  - Labelled drug-drug interaction medication error [Unknown]
  - Pain in extremity [Unknown]
  - Back pain [Unknown]
  - Areflexia [Unknown]
  - Concomitant disease aggravated [Unknown]
